FAERS Safety Report 13003813 (Version 2)
Quarter: 2016Q4

REPORT INFORMATION
  Report Type: Report from Study
  Country: US (occurrence: US)
  Receive Date: 20161206
  Receipt Date: 20161216
  Transmission Date: 20170207
  Serious: Yes (Other)
  Sender: FDA-Public Use
  Company Number: US-GILEAD-2016-0246551

PATIENT
  Age: 67 Year
  Sex: Female
  Weight: 95.69 kg

DRUGS (8)
  1. BENADRYL [Concomitant]
     Active Substance: DIPHENHYDRAMINE HYDROCHLORIDE
     Indication: HYPERSENSITIVITY
  2. VITAMIN C [Concomitant]
     Active Substance: ASCORBIC ACID
  3. OMEPRAZOLE. [Concomitant]
     Active Substance: OMEPRAZOLE
     Indication: GASTRIC ULCER
     Dosage: 20 MG, BID
     Route: 048
     Dates: start: 20161026
  4. ACETAMINOPHEN. [Concomitant]
     Active Substance: ACETAMINOPHEN
     Indication: ARTHRALGIA
  5. IRON [Concomitant]
     Active Substance: IRON
     Indication: ANAEMIA
  6. OMEPRAZOLE. [Concomitant]
     Active Substance: OMEPRAZOLE
     Indication: GASTROOESOPHAGEAL REFLUX DISEASE
  7. SOFOSBUVIR W/VELPATASVIR [Suspect]
     Active Substance: SOFOSBUVIR\VELPATASVIR
     Indication: CHRONIC HEPATITIS C
     Dosage: 1 DF, QD
     Route: 048
     Dates: start: 20161121
  8. VITRON C [Concomitant]
     Active Substance: DIETARY SUPPLEMENT
     Indication: ANAEMIA
     Dosage: UNK
     Dates: start: 20161028

REACTIONS (2)
  - Autoimmune disorder [Not Recovered/Not Resolved]
  - Pain [Not Recovered/Not Resolved]
